FAERS Safety Report 8826445 (Version 2)
Quarter: 2012Q4

REPORT INFORMATION
  Report Type: 
  Country: JP (occurrence: JP)
  Receive Date: 20121008
  Receipt Date: 20121101
  Transmission Date: 20130627
  Serious: No
  Sender: FDA-Public Use
  Company Number: PHHY2012JP087619

PATIENT

DRUGS (1)
  1. VOLTAREN [Suspect]
     Indication: PYREXIA
     Route: 054

REACTIONS (1)
  - Pyrexia [Recovering/Resolving]
